FAERS Safety Report 26047613 (Version 1)
Quarter: 2025Q4

REPORT INFORMATION
  Report Type: Spontaneous
  Country: US (occurrence: None)
  Receive Date: 20251114
  Receipt Date: 20251114
  Transmission Date: 20260118
  Serious: No
  Sender: FDA-CTU
  Company Number: None

PATIENT
  Age: 46 Year
  Sex: Female
  Weight: 95.3 kg

DRUGS (1)
  1. BROMELAIN\LECITHIN\RIBOFLAVIN [Suspect]
     Active Substance: BROMELAINS\LECITHIN\RIBOFLAVIN
     Indication: Weight decreased
     Route: 023
     Dates: start: 20250610, end: 20250612

REACTIONS (4)
  - Product label issue [None]
  - Burning sensation [None]
  - Skin tightness [None]
  - Pain [None]

NARRATIVE: CASE EVENT DATE: 20250623
